FAERS Safety Report 9374728 (Version 1)
Quarter: 2013Q2

REPORT INFORMATION
  Report Type: Spontaneous
  Country: US (occurrence: US)
  Receive Date: 20130628
  Receipt Date: 20130628
  Transmission Date: 20140414
  Serious: No
  Sender: FDA-Public Use
  Company Number: US-PFIZER INC-2013191589

PATIENT
  Age: 57 Year
  Sex: Male
  Weight: 81.63 kg

DRUGS (5)
  1. ADVIL PM [Suspect]
     Indication: PAIN
     Dosage: 2 TABLETS AT NIGHT, FIVE DAYS IN A WEEK
     Dates: start: 2010
  2. SAW PALMETTO [Concomitant]
     Indication: PROSTATIC DISORDER
     Dosage: UNK
  3. OSTEO BI-FLEX [Concomitant]
     Indication: ARTHROPATHY
     Dosage: UNK, DAILY
  4. FISH OIL [Concomitant]
     Indication: SUPPLEMENTATION THERAPY
     Dosage: UNK
  5. ESTER-C [Concomitant]
     Dosage: UNK

REACTIONS (1)
  - Somnolence [Unknown]
